FAERS Safety Report 26084644 (Version 1)
Quarter: 2025Q4

REPORT INFORMATION
  Report Type: Report from Study
  Country: BR (occurrence: BR)
  Receive Date: 20251124
  Receipt Date: 20251124
  Transmission Date: 20260117
  Serious: Yes (Other)
  Sender: JOHNSON AND JOHNSON
  Company Number: BR-JNJFOC-20251162327

PATIENT
  Sex: Female

DRUGS (5)
  1. REMICADE [Suspect]
     Active Substance: INFLIXIMAB
     Indication: Colitis ulcerative
     Route: 041
  2. REMICADE [Suspect]
     Active Substance: INFLIXIMAB
     Route: 041
  3. PREDNISONE [Suspect]
     Active Substance: PREDNISONE
     Indication: Diarrhoea
     Dosage: ONCE IN THE MORNING AND ONCE AT NIGHT
  4. PREDNISONE [Suspect]
     Active Substance: PREDNISONE
     Indication: Pyrexia
  5. PREDNISONE [Suspect]
     Active Substance: PREDNISONE
     Indication: Abdominal pain

REACTIONS (6)
  - Breast cancer [Unknown]
  - Abdominal pain [Unknown]
  - Weight increased [Unknown]
  - Diarrhoea [Unknown]
  - Pyrexia [Unknown]
  - Off label use [Unknown]

NARRATIVE: CASE EVENT DATE: 20220615
